FAERS Safety Report 7883368-3 (Version None)
Quarter: 2011Q4

REPORT INFORMATION
  Report Type: 
  Country: None (occurrence: None)
  Receive Date: 20111102
  Receipt Date: 20111102
  Transmission Date: 20120403
  Serious: Yes (Life-Threatening, Hospitalization)
  Sender: FDA-Public Use
  Company Number: None

PATIENT
  Age: 47 Year
  Sex: Male
  Weight: 125.64 kg

DRUGS (1)
  1. INDOMETHACIN [Suspect]
     Indication: TEMPORAL ARTERITIS
     Dosage: 50MG
     Route: 048
     Dates: start: 20111023, end: 20111030

REACTIONS (14)
  - OEDEMA PERIPHERAL [None]
  - VOMITING [None]
  - EYE DISORDER [None]
  - ERYTHEMA [None]
  - NAUSEA [None]
  - DEPRESSED LEVEL OF CONSCIOUSNESS [None]
  - PRURITUS GENERALISED [None]
  - DIARRHOEA [None]
  - MOVEMENT DISORDER [None]
  - COLD SWEAT [None]
  - HEADACHE [None]
  - DIZZINESS [None]
  - APHASIA [None]
  - PARAESTHESIA [None]
